FAERS Safety Report 5374977-4 (Version None)
Quarter: 2007Q2

REPORT INFORMATION
  Report Type: 
  Country: None (occurrence: None)
  Receive Date: 20070625
  Receipt Date: 20070328
  Transmission Date: 20071010
  Serious: Yes (Hospitalization)
  Sender: FDA-Public Use
  Company Number: 07P-163-0363383-00

PATIENT
  Age: 71 Year
  Sex: Male
  Weight: 58.9676 kg

DRUGS (2)
  1. HUMIRA [Suspect]
     Indication: RHEUMATOID ARTHRITIS
     Dosage: 40 MG, 1 IN 2 WK, SUBCUTANEOUS
     Route: 058
     Dates: start: 20050201
  2. PREDNISONE [Concomitant]

REACTIONS (2)
  - MYOCARDIAL INFARCTION [None]
  - SINUS HEADACHE [None]
